FAERS Safety Report 5761694-1 (Version None)
Quarter: 2008Q2

REPORT INFORMATION
  Report Type: 
  Country: None (occurrence: None)
  Receive Date: 20080602
  Receipt Date: 20080520
  Transmission Date: 20081010
  Serious: Yes (Death)
  Sender: FDA-Public Use
  Company Number: POMP-1000175

PATIENT
  Age: 3 Month
  Sex: Male

DRUGS (1)
  1. MYOZYME [Suspect]
     Indication: GLYCOGEN STORAGE DISEASE TYPE II
     Dosage: UNK, INTRAVENOUS
     Route: 042
     Dates: start: 20080509, end: 20080509

REACTIONS (2)
  - DISEASE COMPLICATION [None]
  - GLYCOGEN STORAGE DISEASE TYPE II [None]
